FAERS Safety Report 4582110-1 (Version None)
Quarter: 2005Q1

REPORT INFORMATION
  Report Type: 
  Country: None (occurrence: None)
  Receive Date: 20050119
  Receipt Date: 20031217
  Transmission Date: 20050727
  Serious: Yes (Hospitalization)
  Sender: FDA-Public Use
  Company Number: A03200303009

PATIENT
  Age: 77 Year
  Sex: Female
  Weight: 67.586 kg

DRUGS (9)
  1. PLAVIX [Suspect]
     Indication: CEREBROVASCULAR ACCIDENT
     Dosage: 75 MG QD - ORAL
     Route: 048
     Dates: start: 20020401, end: 20040324
  2. PLAVIX [Suspect]
     Indication: MYOCARDIAL INFARCTION
     Dosage: 75 MG QD - ORAL
     Route: 048
     Dates: start: 20020401, end: 20040324
  3. PLAVIX [Suspect]
     Indication: PROPHYLAXIS
     Dosage: 75 MG QD - ORAL
     Route: 048
     Dates: start: 20020401, end: 20040324
  4. PLAVIX [Suspect]
     Indication: THROMBOSIS
     Dosage: 75 MG QD - ORAL
     Route: 048
     Dates: start: 20020401, end: 20040324
  5. RISEDRONATE SODIUM [Concomitant]
  6. PENTOXIFYLLINE [Concomitant]
  7. UBIDECARENONE [Concomitant]
  8. VITAMIN B-12 [Concomitant]
  9. ROFECOXIB [Concomitant]

REACTIONS (15)
  - CHEST DISCOMFORT [None]
  - CONTUSION [None]
  - DIZZINESS [None]
  - DYSPNOEA [None]
  - ELECTROCARDIOGRAM ABNORMAL [None]
  - EPISTAXIS [None]
  - GLAUCOMA [None]
  - HAEMORRHAGE [None]
  - HYPERTENSION [None]
  - LETHARGY [None]
  - LOSS OF CONSCIOUSNESS [None]
  - NECK PAIN [None]
  - PAIN IN JAW [None]
  - TACHYCARDIA [None]
  - URINARY TRACT DISORDER [None]
